FAERS Safety Report 18956334 (Version 1)
Quarter: 2021Q1

REPORT INFORMATION
  Report Type: Spontaneous
  Country: US (occurrence: US)
  Receive Date: 20210302
  Receipt Date: 20210302
  Transmission Date: 20210420
  Serious: No
  Sender: FDA-Public Use
  Company Number: US-TEVA-2021-US-1884144

PATIENT
  Age: 39 Year
  Sex: Female
  Weight: 64.86 kg

DRUGS (8)
  1. QVAR REDIHALER [Suspect]
     Active Substance: BECLOMETHASONE DIPROPIONATE
     Dosage: DOSE: 2 PUFF TWICE DAILY
     Route: 055
     Dates: start: 202102
  2. ALBUTEROL. [Suspect]
     Active Substance: ALBUTEROL
     Indication: ASTHMA
     Dosage: AS NEEDED
     Route: 065
  3. LEVOCETIRIZINE [Concomitant]
     Active Substance: LEVOCETIRIZINE
  4. SINGULAIR [Concomitant]
     Active Substance: MONTELUKAST SODIUM
  5. QVAR REDIHALER [Suspect]
     Active Substance: BECLOMETHASONE DIPROPIONATE
     Indication: ASTHMA
     Dosage: DOSE: 1 PUFF TWICE DAILY
     Route: 055
     Dates: start: 2020
  6. ALBUTEROL. [Suspect]
     Active Substance: ALBUTEROL
  7. ALBUTEROL. [Suspect]
     Active Substance: ALBUTEROL
  8. ALBUTEROL. [Suspect]
     Active Substance: ALBUTEROL

REACTIONS (2)
  - Cough [Unknown]
  - Device malfunction [Unknown]

NARRATIVE: CASE EVENT DATE: 202102
